FAERS Safety Report 9710501 (Version 1)
Quarter: 2013Q4

REPORT INFORMATION
  Report Type: Spontaneous
  Country: US (occurrence: US)
  Receive Date: 20131126
  Receipt Date: 20131126
  Transmission Date: 20140711
  Serious: No
  Sender: FDA-Public Use
  Company Number: US-BRISTOL-MYERS SQUIBB COMPANY-18834853

PATIENT
  Sex: Female

DRUGS (9)
  1. BYETTA [Suspect]
     Route: 058
     Dates: start: 2011, end: 2013
  2. LANTUS [Concomitant]
  3. DIOVAN [Concomitant]
  4. LISINOPRIL [Concomitant]
  5. SERTRALINE [Concomitant]
  6. ATORVASTATIN [Concomitant]
  7. VITAMIN B12 [Concomitant]
  8. ASPIRIN [Concomitant]
  9. PROBIOTICA [Concomitant]

REACTIONS (1)
  - Nausea [Recovered/Resolved]
